FAERS Safety Report 6622773-X (Version None)
Quarter: 2010Q1

REPORT INFORMATION
  Report Type: 
  Country: None (occurrence: None)
  Receive Date: 20100310
  Receipt Date: 20100302
  Transmission Date: 20100710
  Serious: Yes (Other)
  Sender: FDA-Public Use
  Company Number: US-RANBAXY-2010US-32061

PATIENT

DRUGS (3)
  1. ACETAMINOPHEN [Suspect]
     Indication: PYREXIA
     Dosage: 1 G, UNK
     Route: 048
     Dates: start: 19991101
  2. ACETAMINOPHEN [Suspect]
     Dosage: 100 MG, UNK
     Route: 048
  3. ACETAMINOPHEN [Suspect]
     Dosage: 200 MG, DURING RECHALLENGE
     Route: 048

REACTIONS (1)
  - ANAPHYLACTIC SHOCK [None]
